FAERS Safety Report 5897633-2 (Version None)
Quarter: 2008Q3

REPORT INFORMATION
  Report Type: 
  Country: None (occurrence: None)
  Receive Date: 20080923
  Receipt Date: 20080909
  Transmission Date: 20090109
  Serious: Yes (Hospitalization)
  Sender: FDA-Public Use
  Company Number: B0537346A

PATIENT
  Age: 33 Year
  Sex: Female

DRUGS (5)
  1. LAMIVUDINE [Suspect]
     Indication: HIV INFECTION
  2. TENOFOVIR DISOPROXIL FUMARATE [Suspect]
     Indication: HIV INFECTION
  3. NEVIRAPINE [Suspect]
     Indication: HIV INFECTION
  4. EMTRICITABINE (FORMULATION UNKNOWN) (EMTRICITABINE) [Suspect]
     Indication: HIV INFECTION
     Dosage: HIV INFECTION
  5. SAQUINAVIR + RITONAVIR (FORMULATION UNKNOWN)(SAQUINAVIR + RITONAVIR) [Suspect]
     Indication: HIV INFECTION

REACTIONS (4)
  - ACNE [None]
  - DERMATITIS ACNEIFORM [None]
  - IMMUNE RECONSTITUTION SYNDROME [None]
  - TOXIC EPIDERMAL NECROLYSIS [None]
